FAERS Safety Report 17561894 (Version 1)
Quarter: 2020Q1

REPORT INFORMATION
  Report Type: Spontaneous
  Country: GB (occurrence: GB)
  Receive Date: 20200319
  Receipt Date: 20200319
  Transmission Date: 20200409
  Serious: Yes (Life-Threatening)
  Sender: FDA-Public Use
  Company Number: GB-TEVA-2020-GB-1203083

PATIENT
  Age: 77 Year
  Sex: Female
  Weight: 80.73 kg

DRUGS (8)
  1. ICAPS [Concomitant]
     Active Substance: MINERALS\VITAMINS
  2. FYBOGEL [Concomitant]
     Active Substance: PLANTAGO OVATA SEED
  3. AVAMYS [Concomitant]
     Active Substance: FLUTICASONE FUROATE
  4. VITAMIN D [Concomitant]
     Active Substance: VITAMIN D NOS
  5. SOLIFENACIN SUCCINATE. [Suspect]
     Active Substance: SOLIFENACIN SUCCINATE
     Indication: BLADDER DISORDER
     Dosage: 5 MG
     Route: 048
     Dates: start: 20191128, end: 20200222
  6. LIDOCAINE. [Concomitant]
     Active Substance: LIDOCAINE
  7. MOVICOL [Concomitant]
     Active Substance: POLYETHYLENE GLYCOL 3350\POTASSIUM CHLORIDE\SODIUM BICARBONATE\SODIUM CHLORIDE
  8. MIRABEGRON [Concomitant]
     Active Substance: MIRABEGRON

REACTIONS (1)
  - Atrial fibrillation [Not Recovered/Not Resolved]
